FAERS Safety Report 11380149 (Version 1)
Quarter: 2015Q3

REPORT INFORMATION
  Report Type: Spontaneous
  Country: US (occurrence: US)
  Receive Date: 20150814
  Receipt Date: 20150814
  Transmission Date: 20151125
  Serious: No
  Sender: FDA-Public Use
  Company Number: US-BIOGENIDEC-2015BI113120

PATIENT
  Age: 26 Year
  Sex: Female

DRUGS (11)
  1. TECFIDERA [Suspect]
     Active Substance: DIMETHYL FUMARATE
     Indication: MULTIPLE SCLEROSIS
     Route: 048
     Dates: end: 201408
  2. EXTAVIA [Concomitant]
     Active Substance: INTERFERON BETA-1B
  3. COPAXONE [Concomitant]
     Active Substance: GLATIRAMER ACETATE
  4. VITAMIN D [Concomitant]
     Active Substance: CHOLECALCIFEROL
  5. REBIF [Concomitant]
     Active Substance: INTERFERON BETA-1A
  6. GILENYA [Concomitant]
     Active Substance: FINGOLIMOD HYDROCHLORIDE
  7. TECFIDERA [Suspect]
     Active Substance: DIMETHYL FUMARATE
     Indication: MULTIPLE SCLEROSIS
     Route: 048
     Dates: start: 201311
  8. TRIAMCINOLONE [Concomitant]
     Active Substance: TRIAMCINOLONE
  9. PREDNISONE. [Concomitant]
     Active Substance: PREDNISONE
  10. AMPYRA [Concomitant]
     Active Substance: DALFAMPRIDINE
  11. DIAZEPAM. [Concomitant]
     Active Substance: DIAZEPAM

REACTIONS (4)
  - Prescribed underdose [Unknown]
  - Incontinence [Unknown]
  - Hot flush [Unknown]
  - Nausea [Unknown]

NARRATIVE: CASE EVENT DATE: 20140809
